FAERS Safety Report 22621479 (Version 1)
Quarter: 2023Q2

REPORT INFORMATION
  Report Type: Report from Study
  Country: DE (occurrence: DE)
  Receive Date: 20230620
  Receipt Date: 20230620
  Transmission Date: 20230721
  Serious: Yes (Death, Life-Threatening, Hospitalization)
  Sender: FDA-Public Use
  Company Number: None

PATIENT
  Age: 81 Year
  Sex: Female

DRUGS (66)
  1. FUROSEMIDE [Suspect]
     Active Substance: FUROSEMIDE
     Indication: Polyuria
     Dosage: 20 MILLIGRAM, QID
     Route: 042
     Dates: start: 20050204, end: 20050216
  2. FUROSEMIDE [Suspect]
     Active Substance: FUROSEMIDE
     Dosage: 10 MILLIGRAM, QID (DOSE: 4 X 10MG)
     Route: 042
     Dates: start: 20050224, end: 20050227
  3. METOCLOPRAMIDE [Suspect]
     Active Substance: METOCLOPRAMIDE
     Indication: Nausea
     Dosage: DOSE: 3X1 AMP
     Route: 042
     Dates: start: 20050205, end: 20050208
  4. METOCLOPRAMIDE [Suspect]
     Active Substance: METOCLOPRAMIDE
     Dosage: UNK
     Route: 042
     Dates: start: 20050216, end: 20050219
  5. VANCOMYCIN [Suspect]
     Active Substance: VANCOMYCIN
     Indication: Product used for unknown indication
     Dosage: 1 GRAM, QD (INDICATION: COLONISATION)
     Route: 042
     Dates: end: 20050206
  6. VANCOMYCIN [Suspect]
     Active Substance: VANCOMYCIN
     Dosage: 0.5 GRAM, QD
     Route: 042
     Dates: start: 20050209, end: 20050221
  7. VANCOMYCIN [Suspect]
     Active Substance: VANCOMYCIN
     Dosage: UNK
     Route: 042
     Dates: start: 20050224, end: 20050224
  8. VANCOMYCIN [Suspect]
     Active Substance: VANCOMYCIN
     Dosage: UNK
     Route: 042
     Dates: start: 20050302
  9. FLUIMUCIL [Suspect]
     Active Substance: ACETYLCYSTEINE
     Indication: Product used for unknown indication
     Dosage: UNK
     Route: 042
     Dates: start: 20050126, end: 20050302
  10. HETASTARCH\SODIUM CHLORIDE [Suspect]
     Active Substance: HETASTARCH\SODIUM CHLORIDE
     Indication: Product used for unknown indication
     Dosage: FORM: INFUSION, DOSE: 130/0
     Route: 042
     Dates: start: 20050201, end: 20050203
  11. HETASTARCH\SODIUM CHLORIDE [Suspect]
     Active Substance: HETASTARCH\SODIUM CHLORIDE
     Dosage: DOSE: 5-0
     Route: 042
     Dates: start: 20050207, end: 20050209
  12. HETASTARCH\SODIUM CHLORIDE [Suspect]
     Active Substance: HETASTARCH\SODIUM CHLORIDE
     Dosage: DOSE: 51
     Route: 042
     Dates: start: 20050215, end: 20050215
  13. HETASTARCH\SODIUM CHLORIDE [Suspect]
     Active Substance: HETASTARCH\SODIUM CHLORIDE
     Dosage: UNK
     Route: 042
     Dates: start: 20050221, end: 20050225
  14. HETASTARCH\SODIUM CHLORIDE [Suspect]
     Active Substance: HETASTARCH\SODIUM CHLORIDE
     Dosage: UNK
     Route: 042
     Dates: start: 20050226, end: 20050228
  15. HETASTARCH\SODIUM CHLORIDE [Suspect]
     Active Substance: HETASTARCH\SODIUM CHLORIDE
     Dosage: UNK
     Route: 042
     Dates: start: 20050302
  16. NOREPINEPHRINE HYDROCHLORIDE, (+/-)- [Suspect]
     Active Substance: NOREPINEPHRINE HYDROCHLORIDE, (+/-)-
     Indication: Product used for unknown indication
     Dosage: UNK
     Route: 042
     Dates: start: 20050126, end: 20050203
  17. NOREPINEPHRINE HYDROCHLORIDE, (+/-)- [Suspect]
     Active Substance: NOREPINEPHRINE HYDROCHLORIDE, (+/-)-
     Dosage: UNK
     Route: 042
     Dates: start: 20050208, end: 20050217
  18. NOREPINEPHRINE HYDROCHLORIDE, (+/-)- [Suspect]
     Active Substance: NOREPINEPHRINE HYDROCHLORIDE, (+/-)-
     Dosage: UNK
     Route: 042
     Dates: start: 20050224, end: 20050303
  19. MIDAZOLAM [Suspect]
     Active Substance: MIDAZOLAM
     Indication: Sedative therapy
     Dosage: 45 MILLIGRAM
     Route: 042
     Dates: start: 20050201, end: 20050213
  20. SULBACTAM SODIUM [Suspect]
     Active Substance: SULBACTAM SODIUM
     Indication: Product used for unknown indication
     Dosage: 1.5 GRAM, QD
     Route: 042
     Dates: start: 20050127, end: 20050215
  21. HEPARIN SODIUM [Suspect]
     Active Substance: HEPARIN SODIUM
     Indication: Thrombosis
     Dosage: STRENGTH: 10000IE
     Route: 042
     Dates: start: 20050128, end: 20050216
  22. ALBUMIN HUMAN [Suspect]
     Active Substance: ALBUMIN HUMAN
     Indication: Product used for unknown indication
     Dosage: 100 MILLILITER, 3X
     Route: 042
     Dates: start: 20050203, end: 20050205
  23. ALBUMIN HUMAN [Suspect]
     Active Substance: ALBUMIN HUMAN
     Dosage: 100 MILLILITER, 2X
     Route: 042
     Dates: start: 20050208, end: 20050210
  24. NOVALGIN (METAMIZOLE SODIUM) [Suspect]
     Active Substance: METAMIZOLE SODIUM
     Indication: Pain
     Dosage: 5 GRAM, QD
     Route: 042
     Dates: start: 20050217, end: 20050226
  25. NOVALGIN (METAMIZOLE SODIUM) [Suspect]
     Active Substance: METAMIZOLE SODIUM
     Dosage: 1 GRAM, QD
     Route: 042
     Dates: start: 20050302, end: 20050302
  26. SUFENTANIL [Suspect]
     Active Substance: SUFENTANIL
     Indication: Analgesic therapy
     Dosage: UNK
     Route: 042
     Dates: start: 20050203, end: 20050213
  27. DOBUTAMINE [Suspect]
     Active Substance: DOBUTAMINE HYDROCHLORIDE
     Indication: Product used for unknown indication
     Dosage: INDICATION REPORTED AS CIRCULATORY REGULATION
     Route: 042
     Dates: start: 20050126, end: 20050203
  28. DOBUTAMINE [Suspect]
     Active Substance: DOBUTAMINE HYDROCHLORIDE
     Dosage: UNK
     Route: 042
     Dates: start: 20050209, end: 20050217
  29. ERYTHROMYCIN [Suspect]
     Active Substance: ERYTHROMYCIN
     Indication: Product used for unknown indication
     Dosage: 300 MILLIGRAM, QD
     Route: 042
     Dates: start: 20050205, end: 20050207
  30. ERYTHROMYCIN [Suspect]
     Active Substance: ERYTHROMYCIN
     Dosage: 400 MILLIGRAM, QD
     Route: 042
     Dates: start: 20050214, end: 20050219
  31. CASPOFUNGIN [Suspect]
     Active Substance: CASPOFUNGIN
     Indication: Candida infection
     Dosage: 70 MILLIGRAM, QD
     Route: 042
     Dates: start: 20050209, end: 20050215
  32. CASPOFUNGIN [Suspect]
     Active Substance: CASPOFUNGIN
     Dosage: 50 MILLIGRAM, QD
     Route: 042
     Dates: start: 20050224, end: 20050303
  33. SPIRONOLACTONE [Suspect]
     Active Substance: SPIRONOLACTONE
     Indication: Oedema
     Dosage: 200 MILLIGRAM, QD
     Route: 042
     Dates: start: 20050206, end: 20050303
  34. ASPIRIN [Suspect]
     Active Substance: ASPIRIN
     Indication: Thrombosis
     Dosage: 1500 MILLIGRAM, QD
     Route: 042
     Dates: start: 20050128, end: 20050206
  35. ASPIRIN [Suspect]
     Active Substance: ASPIRIN
     Dosage: 500 MILLIGRAM, QD
     Route: 042
     Dates: start: 20050208
  36. AMINO ACIDS\CARBOHYDRATES\MINERALS\SOYBEAN OIL\VITAMINS [Suspect]
     Active Substance: AMINO ACIDS\CARBOHYDRATES\MINERALS\SOYBEAN OIL\VITAMINS
     Indication: Product used for unknown indication
     Dosage: 250 MILLILITER (FOR EXTERNAL NUTRITION)
     Route: 048
     Dates: start: 20050205, end: 20050224
  37. PIRITRAMIDE [Suspect]
     Active Substance: PIRITRAMIDE
     Indication: Pain
     Dosage: DOSE: 2X45 30 MG 40 MG
     Route: 042
     Dates: start: 20050214, end: 20050216
  38. ENOXAPARIN SODIUM [Suspect]
     Active Substance: ENOXAPARIN SODIUM
     Indication: Thrombosis
     Dosage: 40 MILLIGRAM, QD
     Route: 058
     Dates: start: 20050217, end: 20050303
  39. OMEPRAZOLE [Suspect]
     Active Substance: OMEPRAZOLE
     Indication: Prophylaxis
     Dosage: 40 MILLIGRAM, QD
     Route: 042
     Dates: start: 20050127, end: 20050303
  40. DIFLUCAN [Suspect]
     Active Substance: FLUCONAZOLE
     Indication: Fungal infection
     Dosage: UNK
     Route: 042
     Dates: start: 20050131, end: 20050210
  41. DEXTROSE [Suspect]
     Active Substance: DEXTROSE\DEXTROSE MONOHYDRATE
     Indication: Product used for unknown indication
     Dosage: 100 MILLILITER (STRENGTH: 40, 20 PERCENT)
     Route: 042
     Dates: start: 20050206, end: 20050218
  42. PIPERACILLIN [Suspect]
     Active Substance: PIPERACILLIN
     Indication: Product used for unknown indication
     Dosage: 12 GRAM, QD
     Route: 042
     Dates: start: 20050127, end: 20050215
  43. AMINO ACIDS, SOURCE UNSPECIFIED [Suspect]
     Active Substance: AMINO ACIDS, SOURCE UNSPECIFIED
     Indication: Product used for unknown indication
     Dosage: FORM: INFUSION, DRUG: THOMAEAMIN
     Route: 042
     Dates: start: 20050207, end: 20050218
  44. INSULIN HUMAN [Suspect]
     Active Substance: INSULIN HUMAN
     Indication: Blood glucose abnormal
     Dosage: STRENGTH: 50IE
     Route: 042
     Dates: start: 20050126, end: 20050303
  45. FERRLECIT [Concomitant]
     Active Substance: SODIUM FERRIC GLUCONATE COMPLEX
     Dosage: UNK
     Route: 042
     Dates: start: 20050225, end: 20050303
  46. LEVOFLOXACIN [Concomitant]
     Active Substance: LEVOFLOXACIN
     Indication: Small intestinal perforation
     Dosage: DOSE: 2X500MG
     Route: 042
     Dates: start: 20050224, end: 20050303
  47. CLEMASTINE FUMARATE [Concomitant]
     Active Substance: CLEMASTINE FUMARATE
     Indication: Pruritus
     Dosage: UNK UNK, QD
     Route: 042
     Dates: start: 20050303, end: 20050303
  48. FENOTEROL HYDROBROMIDE\IPRATROPIUM BROMIDE [Concomitant]
     Active Substance: FENOTEROL HYDROBROMIDE\IPRATROPIUM BROMIDE
     Indication: Dyspnoea
     Dosage: DOSE: 4X2ROA-RESPIRATORY(INHALATION)
     Route: 055
     Dates: start: 20050201, end: 20050206
  49. PROPOFOL [Concomitant]
     Active Substance: PROPOFOL
     Dosage: UNK
     Route: 065
     Dates: start: 20050126
  50. KONAKION [Concomitant]
     Active Substance: PHYTONADIONE
     Dosage: DOSE: 2X10
     Route: 042
     Dates: start: 20050207, end: 20050207
  51. RANITIDINE [Concomitant]
     Active Substance: RANITIDINE
     Dosage: UNK
     Route: 065
     Dates: start: 20050126
  52. METRONIDAZOLE [Concomitant]
     Active Substance: METRONIDAZOLE
     Indication: Small intestinal perforation
     Dosage: 1 GRAM, QD
     Route: 042
     Dates: start: 20050224, end: 20050303
  53. POTASSIUM CHLORIDE [Concomitant]
     Active Substance: POTASSIUM CHLORIDE
     Dosage: UNK
     Route: 042
  54. CLONIDINE [Concomitant]
     Active Substance: CLONIDINE
     Dosage: UNK
     Route: 065
     Dates: start: 20050131
  55. HYDROCORTISONE [Concomitant]
     Active Substance: HYDROCORTISONE
     Dosage: 60 MILLIGRAM
     Route: 042
     Dates: start: 20050202, end: 20050206
  56. CLINOMEL [Concomitant]
     Active Substance: AMINO ACIDS\DEXTROSE\ELECTROLYTES NOS\SOYBEAN OIL
     Dosage: FORM: INFUSION
     Route: 042
     Dates: start: 20050129, end: 20050206
  57. FOLIC ACID [Concomitant]
     Active Substance: FOLIC ACID
     Dosage: UNK
     Route: 042
     Dates: start: 20050226, end: 20050303
  58. CEFOTAXIME [Concomitant]
     Active Substance: CEFOTAXIME SODIUM
     Dosage: UNK
     Route: 065
     Dates: start: 20050126
  59. Tutofusin [Concomitant]
     Dosage: UNK
     Route: 065
     Dates: start: 20050126
  60. LINEZOLID [Concomitant]
     Active Substance: LINEZOLID
     Dosage: UNK
     Route: 065
     Dates: start: 20050304
  61. DIGITOXIN [Concomitant]
     Active Substance: DIGITOXIN
     Dosage: UNK
     Route: 065
     Dates: start: 20050126
  62. POTASSIUM CHLORIDE [Concomitant]
     Active Substance: POTASSIUM CHLORIDE
     Indication: Hypokalaemia
     Dosage: FORM: INFUSION, DOSE: 50MVAL
     Route: 042
     Dates: start: 20050301, end: 20050303
  63. VERAPAMIL [Concomitant]
     Active Substance: VERAPAMIL HYDROCHLORIDE
     Dosage: UNK
     Route: 065
     Dates: start: 20050127
  64. Beloc [Concomitant]
     Indication: Cardiac failure
     Dosage: UNK
     Route: 042
     Dates: start: 20050228, end: 20050303
  65. CYTOBION [Concomitant]
     Dosage: 1000 MICROGRAM
     Route: 042
     Dates: start: 20050225, end: 20050227
  66. DIGITOXIN [Concomitant]
     Active Substance: DIGITOXIN
     Dosage: UNK
     Route: 065
     Dates: start: 20050202

REACTIONS (6)
  - Epidermolysis [Fatal]
  - Toxic epidermal necrolysis [Fatal]
  - Rash [Fatal]
  - Urticaria [Fatal]
  - Dermatitis bullous [Fatal]
  - Stevens-Johnson syndrome [Fatal]

NARRATIVE: CASE EVENT DATE: 20050223
